FAERS Safety Report 23228210 (Version 2)
Quarter: 2024Q1

REPORT INFORMATION
  Report Type: Spontaneous
  Country: US (occurrence: US)
  Receive Date: 20231125
  Receipt Date: 20240222
  Transmission Date: 20240410
  Serious: No
  Sender: FDA-Public Use
  Company Number: US-TEVA-2023-US-2948258

PATIENT
  Age: 72 Year
  Sex: Female
  Weight: 47.63 kg

DRUGS (1)
  1. AJOVY [Suspect]
     Active Substance: FREMANEZUMAB-VFRM
     Indication: Migraine
     Dosage: DOSAGE TEXT: 225/1.5 MG/ML
     Route: 065

REACTIONS (7)
  - Headache [Not Recovered/Not Resolved]
  - Sinonasal obstruction [Unknown]
  - Sneezing [Unknown]
  - Hypersensitivity [Unknown]
  - Neck pain [Unknown]
  - Hypoacusis [Unknown]
  - Insomnia [Unknown]

NARRATIVE: CASE EVENT DATE: 20230101
